FAERS Safety Report 4340094-5 (Version None)
Quarter: 2004Q2

REPORT INFORMATION
  Report Type: 
  Country: None (occurrence: None)
  Receive Date: 20040416
  Receipt Date: 20040407
  Transmission Date: 20050107
  Serious: Yes (Hospitalization)
  Sender: FDA-Public Use
  Company Number: DE-BRISTOL-MYERS SQUIBB COMPANY-12553673

PATIENT
  Age: 59 Year
  Sex: Female

DRUGS (2)
  1. CISPLATIN [Suspect]
     Indication: SMALL CELL LUNG CANCER STAGE UNSPECIFIED
     Route: 042
     Dates: start: 20040225, end: 20040225
  2. ETOPOSIDE [Suspect]
     Indication: SMALL CELL LUNG CANCER STAGE UNSPECIFIED
     Route: 042
     Dates: start: 20040225, end: 20040227

REACTIONS (1)
  - PNEUMONIA [None]
